FAERS Safety Report 5470659-9 (Version None)
Quarter: 2007Q3

REPORT INFORMATION
  Report Type: 
  Country: None (occurrence: None)
  Receive Date: 20070928
  Receipt Date: 20070917
  Transmission Date: 20080115
  Serious: Yes (Hospitalization, Other)
  Sender: FDA-Public Use
  Company Number: US-ELI_LILLY_AND_COMPANY-US200705007853

PATIENT
  Sex: Male

DRUGS (2)
  1. CALCIUM [Concomitant]
     Dates: end: 20070501
  2. FORTEO [Suspect]
     Dosage: UNK, UNK
     Dates: start: 20051101

REACTIONS (4)
  - BLOOD PARATHYROID HORMONE DECREASED [None]
  - HYPERCALCAEMIA [None]
  - HYPOVITAMINOSIS [None]
  - RENAL FAILURE [None]
